FAERS Safety Report 6502876-0 (Version None)
Quarter: 2009Q4

REPORT INFORMATION
  Report Type: 
  Country: None (occurrence: None)
  Receive Date: 20091201
  Receipt Date: 20090817
  Transmission Date: 20100525
  Serious: Yes (Other)
  Sender: FDA-Public Use
  Company Number: 203538USA

PATIENT
  Age: 49 Year
  Sex: Female

DRUGS (4)
  1. RIBAVIRIN [Suspect]
     Indication: HEPATITIS C
     Dosage: 1000 MG (1000 MG, 1 IN 1 D)
     Dates: start: 20090519
  2. PEGINTERFERON ALFA-2A [Suspect]
     Indication: HEPATITIS C
     Dosage: 180 UG (1 IN 1 WK)
     Dates: start: 20090519
  3. METFORMIN [Concomitant]
  4. INSULIN [Concomitant]

REACTIONS (14)
  - ABDOMINAL PAIN UPPER [None]
  - ALOPECIA [None]
  - ARTHRALGIA [None]
  - BLOOD GLUCOSE ABNORMAL [None]
  - BLOOD GLUCOSE INCREASED [None]
  - CONTUSION [None]
  - DEPRESSED MOOD [None]
  - FEELING OF BODY TEMPERATURE CHANGE [None]
  - HAEMOGLOBIN DECREASED [None]
  - INSOMNIA [None]
  - NEUTROPHIL COUNT DECREASED [None]
  - PLATELET COUNT DECREASED [None]
  - WEIGHT DECREASED [None]
  - WHITE BLOOD CELL COUNT DECREASED [None]
